FAERS Safety Report 9498808 (Version 1)
Quarter: 2013Q3

REPORT INFORMATION
  Report Type: Report from Study
  Country: AT (occurrence: AT)
  Receive Date: 20130904
  Receipt Date: 20130904
  Transmission Date: 20140515
  Serious: Yes (Hospitalization)
  Sender: FDA-Public Use
  Company Number: AT-ABBOTT-13P-009-1139136-00

PATIENT
  Age: 57 Year
  Sex: Male
  Weight: 128 kg

DRUGS (1)
  1. ZEMPLAR [Suspect]
     Indication: HYPERPARATHYROIDISM SECONDARY
     Route: 048
     Dates: start: 20120601

REACTIONS (7)
  - Aortic valve stenosis [Unknown]
  - Coronary artery disease [Unknown]
  - Cardiac failure [Unknown]
  - Renal osteodystrophy [Unknown]
  - Anaemia [Unknown]
  - Renal failure chronic [Unknown]
  - Renal failure chronic [Unknown]
